FAERS Safety Report 9341208 (Version 1)
Quarter: 2013Q2

REPORT INFORMATION
  Report Type: Spontaneous
  Country: GR (occurrence: GR)
  Receive Date: 20130611
  Receipt Date: 20130611
  Transmission Date: 20140414
  Serious: Yes (Hospitalization, Other)
  Sender: FDA-Public Use
  Company Number: GR-ROCHE-1234938

PATIENT
  Age: 59 Year
  Sex: Female

DRUGS (2)
  1. AVASTIN [Suspect]
     Indication: COLON CANCER
     Dosage: 2 BOXES EVERY MONTH
     Route: 042
     Dates: start: 200710
  2. AVASTIN [Suspect]
     Indication: OVARIAN CANCER

REACTIONS (11)
  - Candida infection [Recovered/Resolved]
  - Anaphylactic shock [Recovered/Resolved]
  - Hypersensitivity [Recovered/Resolved]
  - Palmar-plantar erythrodysaesthesia syndrome [Recovered/Resolved]
  - Lip swelling [Recovered/Resolved]
  - Vomiting [Recovered/Resolved]
  - Diarrhoea [Recovered/Resolved]
  - Erythema [Recovered/Resolved]
  - Parathyroid gland enlargement [Unknown]
  - Hypertension [Recovered/Resolved]
  - Haemorrhoids [Unknown]
